FAERS Safety Report 10693514 (Version 4)
Quarter: 2015Q3

REPORT INFORMATION
  Report Type: Spontaneous
  Country: US (occurrence: US)
  Receive Date: 20150106
  Receipt Date: 20150720
  Transmission Date: 20151125
  Serious: No
  Sender: FDA-Public Use
  Company Number: US-009507513-1501USA000576

PATIENT
  Sex: Male
  Weight: 101.13 kg

DRUGS (1)
  1. PROPECIA [Suspect]
     Active Substance: FINASTERIDE
     Indication: ALOPECIA
     Dosage: 1 MG, QD
     Route: 048
     Dates: start: 20000705, end: 200512

REACTIONS (24)
  - Anxiety [Unknown]
  - Marital problem [Not Recovered/Not Resolved]
  - Muscle strain [Unknown]
  - Weight increased [Unknown]
  - Epididymitis [Unknown]
  - Depression [Unknown]
  - Anxiety [Not Recovered/Not Resolved]
  - Haemorrhoids [Unknown]
  - Pollakiuria [Unknown]
  - Hyperlipidaemia [Unknown]
  - Liver function test abnormal [Unknown]
  - Sexual dysfunction [Not Recovered/Not Resolved]
  - Secondary hypogonadism [Unknown]
  - Hypertension [Unknown]
  - Libido decreased [Unknown]
  - Asthenia [Unknown]
  - Weight decreased [Unknown]
  - Hyperglycaemia [Unknown]
  - Erectile dysfunction [Unknown]
  - Disturbance in attention [Unknown]
  - Muscle atrophy [Unknown]
  - Attention deficit/hyperactivity disorder [Unknown]
  - Neck pain [Not Recovered/Not Resolved]
  - Depression [Not Recovered/Not Resolved]

NARRATIVE: CASE EVENT DATE: 20010517
